FAERS Safety Report 5916787-2 (Version None)
Quarter: 2008Q4

REPORT INFORMATION
  Report Type: 
  Country: None (occurrence: None)
  Receive Date: 20081013
  Receipt Date: 20081001
  Transmission Date: 20090506
  Serious: Yes (Other)
  Sender: FDA-Public Use
  Company Number: AU-PFIZER INC-2008077485

PATIENT
  Sex: Female
  Weight: 77 kg

DRUGS (2)
  1. ZOLOFT [Suspect]
     Indication: DEPRESSION
     Route: 048
  2. AMCAL COLD AND FLU [Interacting]
     Dates: end: 20080910

REACTIONS (6)
  - AGITATION [None]
  - CHEST PAIN [None]
  - DRUG INTERACTION [None]
  - DYSPNOEA [None]
  - HYPERTENSION [None]
  - THROAT TIGHTNESS [None]
